FAERS Safety Report 8955529 (Version 1)
Quarter: 2012Q4

REPORT INFORMATION
  Report Type: Spontaneous
  Country: US (occurrence: None)
  Receive Date: 20121130
  Receipt Date: 20121130
  Transmission Date: 20130627
  Serious: Yes (Other)
  Sender: FDA-Public Use
  Company Number: FK201203517

PATIENT
  Age: 13 Year
  Sex: Male

DRUGS (6)
  1. DOXORUBICIN [Suspect]
     Indication: HODGKIN^S DISEASE
  2. BLEOMYCIN [Suspect]
  3. ETOPOSIDE [Suspect]
  4. CYCLOPHOSPHAMIDE [Suspect]
  5. VINCRISTINE [Suspect]
  6. PREDNISONE [Suspect]

REACTIONS (1)
  - Eruptive pseudoangiomatosis [None]
